FAERS Safety Report 7863203-X (Version None)
Quarter: 2011Q4

REPORT INFORMATION
  Report Type: 
  Country: None (occurrence: None)
  Receive Date: 20111027
  Receipt Date: 20101130
  Transmission Date: 20120403
  Serious: No
  Sender: FDA-Public Use
  Company Number: US-AMGEN-US038334

PATIENT
  Age: 59 Year
  Sex: Female

DRUGS (4)
  1. ENBREL [Suspect]
     Indication: RHEUMATOID ARTHRITIS
     Dosage: 25 MG, 2 TIMES/WK
     Route: 058
     Dates: start: 19990201
  2. ENBREL [Suspect]
     Dosage: 25 MG, 2 TIMES/WK
     Route: 058
     Dates: start: 19990201
  3. ENBREL [Suspect]
     Dosage: 50 MG, QWK
     Dates: start: 19980101
  4. METHOTREXATE [Concomitant]
     Dosage: 25 MG, QWK

REACTIONS (2)
  - RHEUMATOID ARTHRITIS [None]
  - INCORRECT STORAGE OF DRUG [None]
